FAERS Safety Report 14750090 (Version 2)
Quarter: 2018Q4

REPORT INFORMATION
  Report Type: Report from Study
  Country: US (occurrence: US)
  Receive Date: 20180412
  Receipt Date: 20181009
  Transmission Date: 20190204
  Serious: Yes (Other)
  Sender: FDA-Public Use
  Company Number: PHEH2018US014052

PATIENT
  Sex: Female

DRUGS (1)
  1. COSENTYX [Suspect]
     Active Substance: SECUKINUMAB
     Indication: PSORIATIC ARTHROPATHY
     Dosage: 150 MG, QMO
     Route: 058

REACTIONS (7)
  - Fatigue [Unknown]
  - Hypersomnia [Unknown]
  - Therapeutic response shortened [Unknown]
  - Pain [Unknown]
  - Psoriatic arthropathy [Unknown]
  - Asthenia [Unknown]
  - Inappropriate schedule of product administration [Unknown]
